FAERS Safety Report 14298240 (Version 5)
Quarter: 2018Q2

REPORT INFORMATION
  Report Type: Spontaneous
  Country: JP (occurrence: JP)
  Receive Date: 20171218
  Receipt Date: 20180405
  Transmission Date: 20180711
  Serious: No
  Sender: FDA-Public Use
  Company Number: JP-ABBVIE-17P-087-2195615-00

PATIENT
  Age: 52 Year
  Sex: Male
  Weight: 72 kg

DRUGS (2)
  1. MAVIRET [Suspect]
     Active Substance: GLECAPREVIR\PIBRENTASVIR
     Indication: HEPATIC CIRRHOSIS
     Dosage: 100/40MG (3 TABS DAILY)
     Route: 048
     Dates: start: 20171213
  2. MAVIRET [Suspect]
     Active Substance: GLECAPREVIR\PIBRENTASVIR
     Indication: HEPATITIS C
     Dosage: 100/40MG (3 TABS DAILY)
     Route: 048
     Dates: start: 20171207, end: 20171210

REACTIONS (2)
  - Pyrexia [Recovered/Resolved]
  - Blood bilirubin increased [Recovered/Resolved]

NARRATIVE: CASE EVENT DATE: 20171210
